FAERS Safety Report 24665278 (Version 1)
Quarter: 2024Q4

REPORT INFORMATION
  Report Type: Spontaneous
  Country: JP (occurrence: JP)
  Receive Date: 20241126
  Receipt Date: 20241126
  Transmission Date: 20250115
  Serious: Yes (Life-Threatening, Hospitalization)
  Sender: ACCORD
  Company Number: JP-Accord-456434

PATIENT
  Age: 33 Year
  Sex: Male
  Weight: 30 kg

DRUGS (6)
  1. LEVETIRACETAM [Interacting]
     Active Substance: LEVETIRACETAM
     Indication: Epilepsy
     Dosage: PRESCRIBED FOR OVER 10 YEARS AS HIS DAILY ANTIEPILEPTIC MEDICATION
  2. ROCURONIUM BROMIDE [Interacting]
     Active Substance: ROCURONIUM BROMIDE
     Indication: Muscle relaxant therapy
     Dosage: 0.66 MG/KG
  3. DIAZEPAM [Concomitant]
     Active Substance: DIAZEPAM
     Indication: Status epilepticus
  4. OXYGEN [Concomitant]
     Active Substance: OXYGEN
     Indication: Oxygen therapy
  5. SEVOFLURANE [Concomitant]
     Active Substance: SEVOFLURANE
     Indication: Induction of anaesthesia
     Dosage: 3% SLOW MASK INDUCTION
  6. FENTANYL [Concomitant]
     Active Substance: FENTANYL
     Indication: Induction of anaesthesia
     Dosage: BOLUSES

REACTIONS (4)
  - Drug interaction [Recovered/Resolved]
  - Drug resistance [Recovered/Resolved]
  - Paralysis [Recovered/Resolved]
  - Neuromuscular block prolonged [Recovered/Resolved]
